FAERS Safety Report 15012450 (Version 1)
Quarter: 2018Q2

REPORT INFORMATION
  Report Type: Spontaneous
  Country: FR (occurrence: FR)
  Receive Date: 20180614
  Receipt Date: 20180614
  Transmission Date: 20180711
  Serious: Yes (Hospitalization)
  Sender: FDA-Public Use
  Company Number: FR-TEVA-2018-FR-907610

PATIENT
  Age: 44 Year
  Sex: Male
  Weight: 86 kg

DRUGS (8)
  1. REVIA [Suspect]
     Active Substance: NALTREXONE HYDROCHLORIDE
     Dosage: 50 MILLIGRAM DAILY;
     Route: 048
  2. SERESTA [Suspect]
     Active Substance: OXAZEPAM
     Dosage: 200 MILLIGRAM DAILY;
     Route: 048
  3. NOZINAN [Suspect]
     Active Substance: LEVOMEPROMAZINE
     Indication: SCHIZOPHRENIA
     Dosage: 37.5 MILLIGRAM DAILY;
     Route: 048
  4. ANDROCUR [Suspect]
     Active Substance: CYPROTERONE ACETATE
     Route: 048
  5. DEPAKOTE [Suspect]
     Active Substance: DIVALPROEX SODIUM
     Indication: SCHIZOPHRENIA
     Dosage: 1000 MILLIGRAM DAILY;
     Route: 048
  6. LEPONEX [Suspect]
     Active Substance: CLOZAPINE
     Indication: SCHIZOPHRENIA
     Route: 048
  7. LANSOPRAZOLE. [Suspect]
     Active Substance: LANSOPRAZOLE
     Dosage: 15 MILLIGRAM DAILY;
     Route: 048
  8. TOVIAZ [Suspect]
     Active Substance: FESOTERODINE FUMARATE
     Dosage: 8 MILLIGRAM DAILY;
     Route: 048

REACTIONS (2)
  - Eosinophilia [Not Recovered/Not Resolved]
  - Pleural effusion [Not Recovered/Not Resolved]

NARRATIVE: CASE EVENT DATE: 20180326
